FAERS Safety Report 11574108 (Version 2)
Quarter: 2015Q4

REPORT INFORMATION
  Report Type: Spontaneous
  Country: CA (occurrence: CA)
  Receive Date: 20150930
  Receipt Date: 20151008
  Transmission Date: 20160304
  Serious: Yes (Other)
  Sender: FDA-Public Use
  Company Number: CA-HOSPIRA-3022741

PATIENT
  Age: 72 Year
  Sex: Female

DRUGS (5)
  1. PREDNISONE. [Concomitant]
     Active Substance: PREDNISONE
     Indication: PRODUCT USED FOR UNKNOWN INDICATION
  2. PLAQUENIL [Suspect]
     Active Substance: HYDROXYCHLOROQUINE SULFATE
     Indication: RHEUMATOID ARTHRITIS
     Route: 065
  3. ARAVA [Suspect]
     Active Substance: LEFLUNOMIDE
     Indication: RHEUMATOID ARTHRITIS
     Route: 065
  4. SULFASALAZINE. [Suspect]
     Active Substance: SULFASALAZINE
     Indication: RHEUMATOID ARTHRITIS
     Route: 065
  5. METHOTREXATE [Suspect]
     Active Substance: METHOTREXATE
     Indication: RHEUMATOID ARTHRITIS
     Dosage: WEEKLY
     Route: 058
     Dates: start: 2012

REACTIONS (11)
  - Pyrexia [Unknown]
  - Rheumatoid arthritis [Not Recovered/Not Resolved]
  - Erythema [Unknown]
  - Rhinorrhoea [Not Recovered/Not Resolved]
  - Drug intolerance [Unknown]
  - Pruritus [Unknown]
  - Eczema [Unknown]
  - Therapeutic response decreased [Unknown]
  - Rash [Unknown]
  - Swelling face [Unknown]
  - Diarrhoea [Unknown]
